FAERS Safety Report 8806683 (Version 1)
Quarter: 2012Q4

REPORT INFORMATION
  Report Type: Spontaneous
  Country: US (occurrence: None)
  Receive Date: 20120920
  Receipt Date: 20120920
  Transmission Date: 20130627
  Serious: Yes (Other)
  Sender: FDA-Public Use
  Company Number: None

PATIENT
  Age: 9 Year
  Sex: Male

DRUGS (1)
  1. AMPHETAMINE ASPARTATE AND AMPHETAMINE SULFATE AND DEXTROAMPHETAMINE SACCHARATE AND DEXTROAMPHETAMINE [Suspect]
     Indication: ADHD
     Dosage: 10 mg qd po
     Route: 048
     Dates: start: 20110101, end: 20110114

REACTIONS (4)
  - Depression [None]
  - Self esteem decreased [None]
  - Drug intolerance [None]
  - Product substitution issue [None]
